FAERS Safety Report 11823109 (Version 2)
Quarter: 2016Q1

REPORT INFORMATION
  Report Type: Spontaneous
  Country: GB (occurrence: GB)
  Receive Date: 20151210
  Receipt Date: 20160127
  Transmission Date: 20160525
  Serious: Yes (Life-Threatening)
  Sender: FDA-Public Use
  Company Number: GB-SA-2015SA205844

PATIENT
  Age: 60 Year
  Sex: Male
  Weight: 67 kg

DRUGS (5)
  1. LOSARTAN. [Concomitant]
     Active Substance: LOSARTAN
  2. OMEPRAZOLE. [Concomitant]
     Active Substance: OMEPRAZOLE
  3. LEFLUNOMIDE. [Suspect]
     Active Substance: LEFLUNOMIDE
     Indication: RHEUMATOID ARTHRITIS
     Dosage: 10MG EVERY OTHER DAY (I.E. I ONLY TOOK THREE TABLETS BEFORE THE SIDE EFFECT OCCURRED)
     Route: 048
     Dates: start: 20151118, end: 20151122
  4. NAPROXEN. [Concomitant]
     Active Substance: NAPROXEN
  5. HUMIRA [Concomitant]
     Active Substance: ADALIMUMAB

REACTIONS (1)
  - Cerebrovascular accident [Recovered/Resolved]

NARRATIVE: CASE EVENT DATE: 20151122
